FAERS Safety Report 23173770 (Version 1)
Quarter: 2023Q4

REPORT INFORMATION
  Report Type: Spontaneous
  Country: US (occurrence: US)
  Receive Date: 20231111
  Receipt Date: 20231111
  Transmission Date: 20240110
  Serious: Yes (Hospitalization)
  Sender: FDA-Public Use
  Company Number: US-STRIDES ARCOLAB LIMITED-2023SP016769

PATIENT
  Age: 40 Year
  Sex: Male

DRUGS (3)
  1. ISOSORBIDE MONONITRATE [Suspect]
     Active Substance: ISOSORBIDE MONONITRATE
     Indication: Coronary artery disease
     Dosage: UNK
     Route: 065
  2. NITROGLYCERIN [Suspect]
     Active Substance: NITROGLYCERIN
     Indication: Coronary artery disease
     Dosage: UNK
     Route: 065
  3. ACETYLCHOLINE CHLORIDE [Suspect]
     Active Substance: ACETYLCHOLINE CHLORIDE
     Indication: Coronary artery disease
     Dosage: 100 MICROGRAM; SPASM DOSE ; OVER THREE MINUTES
     Route: 065

REACTIONS (3)
  - Arteriospasm coronary [Recovered/Resolved]
  - Condition aggravated [Recovered/Resolved]
  - Therapy non-responder [Unknown]
